FAERS Safety Report 6591649-9 (Version None)
Quarter: 2010Q1

REPORT INFORMATION
  Report Type: 
  Country: None (occurrence: None)
  Receive Date: 20100221
  Receipt Date: 20090609
  Transmission Date: 20100710
  Serious: No
  Sender: FDA-Public Use
  Company Number: US-ALLERGAN-0907036US

PATIENT
  Age: 64 Year
  Sex: Female
  Weight: 67.12 kg

DRUGS (4)
  1. BOTOX [Suspect]
     Indication: HEADACHE
     Dosage: 100 UNITS, SINGLE
     Route: 030
     Dates: start: 20080211, end: 20080211
  2. BOTOX [Suspect]
     Dosage: 100 UNITS, SINGLE
     Route: 030
     Dates: start: 20090225, end: 20090225
  3. FIORICET [Concomitant]
  4. MIDRIN [Concomitant]

REACTIONS (1)
  - ALOPECIA [None]
